FAERS Safety Report 22110592 (Version 1)
Quarter: 2023Q1

REPORT INFORMATION
  Report Type: Spontaneous
  Country: US (occurrence: US)
  Receive Date: 20230317
  Receipt Date: 20230317
  Transmission Date: 20230418
  Serious: Yes (Hospitalization, Other)
  Sender: FDA-Public Use
  Company Number: US-BIOVITRUM-2023-US-006868

PATIENT
  Age: 2 Year
  Sex: Male

DRUGS (1)
  1. SYNAGIS [Suspect]
     Active Substance: PALIVIZUMAB
     Indication: Immunodeficiency
     Route: 030
     Dates: start: 202211

REACTIONS (3)
  - Pyrexia [Unknown]
  - Multisystem inflammatory syndrome [Unknown]
  - Intentional product misuse [Unknown]
